FAERS Safety Report 9243034 (Version 6)
Quarter: 2013Q4

REPORT INFORMATION
  Report Type: Report from Study
  Country: DE (occurrence: DE)
  Receive Date: 20130419
  Receipt Date: 20131224
  Transmission Date: 20140711
  Serious: Yes (Hospitalization, Other)
  Sender: FDA-Public Use
  Company Number: DE-UCBSA-079159

PATIENT
  Sex: Male
  Weight: 69 kg

DRUGS (12)
  1. CERTOLIZUMAB PEGOL [Suspect]
     Indication: RHEUMATOID ARTHRITIS
     Dosage: NO OF DOSES RECEIVED: 7
     Route: 058
     Dates: start: 20120723, end: 20121017
  2. CERTOLIZUMAB PEGOL [Suspect]
     Indication: RHEUMATOID ARTHRITIS
     Dosage: NO OF DOSES RECEIVED:4
     Route: 058
     Dates: start: 20120507, end: 20120618
  3. CERTOLIZUMAB PEGOL [Suspect]
     Indication: RHEUMATOID ARTHRITIS
     Dosage: NO OF DOSES RECEIVED: 3
     Route: 058
     Dates: start: 20120326, end: 20120424
  4. OMEPRAZOLE [Concomitant]
     Indication: GASTRIC ULCER
     Route: 048
     Dates: start: 2003
  5. PREDNISOLONE [Concomitant]
     Indication: RHEUMATOID ARTHRITIS
     Route: 048
     Dates: start: 2003
  6. METOHEXAL SUCC [Concomitant]
     Indication: HYPERTENSION
     Route: 048
     Dates: start: 2003
  7. METFORMIN [Concomitant]
     Indication: DIABETES MELLITUS
     Route: 048
     Dates: start: 2008
  8. RAMIPRIL+HCT [Concomitant]
     Indication: HYPERTENSION
     Dosage: DOSE: 5/25
     Route: 048
     Dates: start: 2008
  9. METEX [Concomitant]
     Indication: RHEUMATOID ARTHRITIS
     Dosage: DOSE : 15 MG , FREQUENCY : QS
     Route: 048
     Dates: start: 2003
  10. ALLOPURINOL [Concomitant]
     Indication: HYPERURICAEMIA
     Route: 048
     Dates: start: 2008
  11. GABAPENTIN [Concomitant]
     Indication: DIABETES MELLITUS
  12. GABAPENTIN [Concomitant]
     Indication: POLYNEUROPATHY

REACTIONS (2)
  - Benign salivary gland neoplasm [Not Recovered/Not Resolved]
  - Parotid gland enlargement [Recovered/Resolved]
